FAERS Safety Report 8266409-3 (Version None)
Quarter: 2012Q2

REPORT INFORMATION
  Report Type: 
  Country: None (occurrence: None)
  Receive Date: 20120406
  Receipt Date: 20120401
  Transmission Date: 20120825
  Serious: Yes (Death)
  Sender: FDA-Public Use
  Company Number: CN-PFIZER INC-2012082242

PATIENT
  Age: 1 Year

DRUGS (1)
  1. SOLU-MEDROL [Suspect]
     Indication: LUNG CONSOLIDATION
     Dosage: 2-4MG DAILY
     Dates: start: 20120101, end: 20120101

REACTIONS (4)
  - LUNG CONSOLIDATION [None]
  - RESPIRATORY FAILURE [None]
  - CARDIAC FAILURE [None]
  - DRUG INEFFECTIVE [None]
